FAERS Safety Report 9691125 (Version 1)
Quarter: 2013Q4

REPORT INFORMATION
  Report Type: Spontaneous
  Country: GB (occurrence: GB)
  Receive Date: 20131115
  Receipt Date: 20131115
  Transmission Date: 20140711
  Serious: Yes (Life-Threatening, Hospitalization)
  Sender: FDA-Public Use
  Company Number: GB-BRISTOL-MYERS SQUIBB COMPANY-19767243

PATIENT
  Age: 20 Year
  Sex: Male
  Weight: 80 kg

DRUGS (5)
  1. ARIPIPRAZOLE [Suspect]
     Indication: ABNORMAL BEHAVIOUR
     Route: 048
     Dates: start: 20120614, end: 20130304
  2. ARIPIPRAZOLE [Suspect]
     Indication: AFFECTIVE DISORDER
     Route: 048
     Dates: start: 20120614, end: 20130304
  3. CONCERTA XL [Concomitant]
  4. MIDAZOLAM HCL [Concomitant]
  5. SODIUM VALPROATE [Concomitant]

REACTIONS (7)
  - Pneumonia [Unknown]
  - Dysphagia [Unknown]
  - Flushing [Recovered/Resolved]
  - Muscle rigidity [Recovered/Resolved]
  - Parkinsonism [Unknown]
  - Musculoskeletal stiffness [Unknown]
  - Tremor [Unknown]
